FAERS Safety Report 21616236 (Version 2)
Quarter: 2023Q1

REPORT INFORMATION
  Report Type: Report from Study
  Country: US (occurrence: US)
  Receive Date: 20221118
  Receipt Date: 20230110
  Transmission Date: 20230417
  Serious: Yes (Death, Hospitalization, Other)
  Sender: FDA-Public Use
  Company Number: US-ABBVIE-4205659

PATIENT
  Age: 74 Year
  Sex: Female
  Weight: 99.79 kg

DRUGS (3)
  1. CREON [Suspect]
     Active Substance: PANCRELIPASE AMYLASE\PANCRELIPASE LIPASE\PANCRELIPASE PROTEASE
     Indication: Pancreatic neoplasm
     Dosage: TWO THREE TIMES A DAY,?FORM STRENGTH: 36000 UNIT
     Route: 048
     Dates: start: 202209
  2. CREON [Suspect]
     Active Substance: PANCRELIPASE AMYLASE\PANCRELIPASE LIPASE\PANCRELIPASE PROTEASE
     Indication: Pancreatic neoplasm
     Dosage: FORM STRENGTH: 36000 UNIT?THREE TIMES A DAY BREAKFAST, LUNCH AND DINNER
     Route: 048
     Dates: start: 202206, end: 202209
  3. OMEPRAZOLE [Concomitant]
     Active Substance: OMEPRAZOLE
     Indication: Product used for unknown indication

REACTIONS (15)
  - Hypotension [Fatal]
  - Gait disturbance [Not Recovered/Not Resolved]
  - Alopecia [Unknown]
  - Dehydration [Recovered/Resolved]
  - Urinary tract infection [Recovered/Resolved]
  - Acute kidney injury [Fatal]
  - Hepatic cancer [Unknown]
  - Thrombosis [Recovered/Resolved]
  - Illness [Unknown]
  - Unevaluable event [Unknown]
  - Biliary obstruction [Unknown]
  - Rash [Unknown]
  - Mouth ulceration [Not Recovered/Not Resolved]
  - Septic shock [Fatal]
  - Arterial injury [Fatal]

NARRATIVE: CASE EVENT DATE: 20220603
